FAERS Safety Report 19623307 (Version 1)
Quarter: 2021Q3

REPORT INFORMATION
  Report Type: Spontaneous
  Country: BR (occurrence: BR)
  Receive Date: 20210728
  Receipt Date: 20210728
  Transmission Date: 20211014
  Serious: Yes (Disabling, Other)
  Sender: FDA-Public Use
  Company Number: BR-SA-2016SA187352

PATIENT
  Age: 65 Year
  Sex: Female
  Weight: 89 kg

DRUGS (18)
  1. ARADOIS [Concomitant]
     Active Substance: LOSARTAN POTASSIUM
     Indication: BLOOD PRESSURE ABNORMAL
     Dosage: UNK, TID
     Route: 048
  2. ZETIA [Concomitant]
     Active Substance: EZETIMIBE
     Indication: BLOOD PRESSURE ABNORMAL
     Dosage: 10 MG, QD (ONCE A DAY AT NIGHT)
     Route: 048
  3. EUTHYROX [Concomitant]
     Active Substance: LEVOTHYROXINE SODIUM
     Indication: THYROID DISORDER
     Dosage: 100 MG
     Route: 048
  4. CEBRALAT [Concomitant]
     Active Substance: CILOSTAZOL
     Dosage: 50 MG, QD
     Route: 048
     Dates: start: 2016
  5. LANTUS [Suspect]
     Active Substance: INSULIN GLARGINE
     Indication: TYPE 2 DIABETES MELLITUS
     Dosage: 40 IU IN THE MORNING AND 20 UI AT NIGHT, BID
     Route: 058
     Dates: start: 1994
  6. NEBILET [Concomitant]
     Active Substance: NEBIVOLOL
     Dosage: UNK
     Route: 065
  7. ARADOIS H [Concomitant]
     Active Substance: HYDROCHLOROTHIAZIDE\LOSARTAN POTASSIUM
     Dosage: UNK
     Route: 065
  8. JARDIANCE [Concomitant]
     Active Substance: EMPAGLIFLOZIN
     Indication: DIABETES MELLITUS
     Dosage: 10 MG, QD
     Route: 048
     Dates: start: 2019
  9. SUCCINATO DE SOLIFENACINA [Concomitant]
     Indication: URINARY INCONTINENCE
     Dosage: 5 MG, QD (ONCE A DAY BEFORE DINNER)
     Route: 048
  10. QUETIAPINA [QUETIAPINE] [Concomitant]
     Active Substance: QUETIAPINE
     Indication: MENTAL DISORDER
     Dosage: 25 MG, QD
     Route: 048
     Dates: start: 2013
  11. COGMAX [Concomitant]
     Indication: MEMORY IMPAIRMENT
     Dosage: UNK UNK, QD (ONCE A DAY BEFORE DINNER)
     Route: 048
     Dates: start: 202105
  12. BIOGAMMA [INTERFERON GAMMA] [Concomitant]
     Indication: THROMBOSIS
     Dosage: 150 MG, QD
     Route: 048
  13. ROSUCOR [Concomitant]
     Active Substance: ROSUVASTATIN CALCIUM
     Indication: BLOOD CHOLESTEROL ABNORMAL
     Dosage: 20 MG, QD
     Route: 048
  14. VELIJA [Concomitant]
     Active Substance: DULOXETINE HYDROCHLORIDE
     Indication: MENTAL DISORDER
     Dosage: 60 MG, QD
     Route: 048
     Dates: start: 2013
  15. LAMITOL [Concomitant]
     Active Substance: LABETALOL HYDROCHLORIDE
     Indication: BIPOLAR DISORDER
     Dosage: 100 MG, QD
     Route: 048
  16. CLOPIN [CLOZAPINE] [Concomitant]
     Indication: CEREBROVASCULAR ACCIDENT
     Dosage: 75 MG, QD (ONCE A DAY AT NIGHT)
     Route: 048
     Dates: start: 2013
  17. APIDRA [Concomitant]
     Active Substance: INSULIN GLULISINE
     Indication: DIABETES MELLITUS
     Dosage: UNK (BEFORE LUNCH)
     Route: 058
     Dates: start: 1994
  18. PERIDAL [DOMPERIDONE] [Concomitant]
     Indication: ABDOMINAL DISCOMFORT
     Dosage: 10 MG, QD
     Route: 048

REACTIONS (11)
  - Dementia [Unknown]
  - Gait inability [Unknown]
  - Glycosylated haemoglobin increased [Unknown]
  - Disability [Unknown]
  - Product prescribing issue [Unknown]
  - Cerebrovascular accident [Not Recovered/Not Resolved]
  - Depression [Not Recovered/Not Resolved]
  - Blood pressure abnormal [Not Recovered/Not Resolved]
  - Glaucoma [Not Recovered/Not Resolved]
  - Intracranial aneurysm [Not Recovered/Not Resolved]
  - Renal failure [Not Recovered/Not Resolved]

NARRATIVE: CASE EVENT DATE: 1994
